FAERS Safety Report 6793434-1 (Version None)
Quarter: 2010Q2

REPORT INFORMATION
  Report Type: 
  Country: None (occurrence: None)
  Receive Date: 20100624
  Receipt Date: 20100408
  Transmission Date: 20101027
  Serious: Yes (Death, Hospitalization)
  Sender: FDA-Public Use
  Company Number: US-MYLANLABS-2010S1003666

PATIENT
  Age: 50 Year
  Sex: Male

DRUGS (11)
  1. CLOZAPINE [Suspect]
     Route: 048
  2. LASIX [Concomitant]
  3. ALBUTEROL [Concomitant]
     Dosage: 2 PUFFS
     Route: 055
  4. ADVAIR DISKUS 100/50 [Concomitant]
     Dosage: 500/50 1 PUFF  BID
     Route: 055
  5. LISINOPRIL [Concomitant]
  6. ASPIRIN [Concomitant]
  7. RISPERDAL [Concomitant]
  8. DEPAKOTE [Concomitant]
  9. DEPAKOTE [Concomitant]
  10. ALPHAGAN [Concomitant]
     Route: 047
  11. COSOPT [Concomitant]
     Route: 047

REACTIONS (4)
  - ACUTE RESPIRATORY FAILURE [None]
  - CARDIAC DEATH [None]
  - CARDIAC FAILURE CONGESTIVE [None]
  - PNEUMONIA ASPIRATION [None]
